FAERS Safety Report 12458736 (Version 1)
Quarter: 2016Q2

REPORT INFORMATION
  Report Type: Spontaneous
  Country: US (occurrence: US)
  Receive Date: 20160613
  Receipt Date: 20160613
  Transmission Date: 20160815
  Serious: Yes (Hospitalization)
  Sender: FDA-Public Use
  Company Number: US-CIPLA LTD.-2016US06581

PATIENT

DRUGS (3)
  1. WARFARIN [Suspect]
     Active Substance: WARFARIN
     Indication: ATRIAL FIBRILLATION
     Dosage: UNK
     Route: 065
  2. ARGATROBAN. [Suspect]
     Active Substance: ARGATROBAN
     Indication: ACUTE MYOCARDIAL INFARCTION
     Dosage: UNK
     Route: 065
  3. ASPIRIN. [Suspect]
     Active Substance: ASPIRIN
     Dosage: UNK
     Route: 065

REACTIONS (12)
  - Acute myocardial infarction [Recovering/Resolving]
  - Cerebral infarction [Recovering/Resolving]
  - Mental status changes [Recovering/Resolving]
  - Embolic stroke [Recovering/Resolving]
  - Eye movement disorder [Recovering/Resolving]
  - Seizure [Recovering/Resolving]
  - Gastrointestinal haemorrhage [Recovering/Resolving]
  - Melaena [Recovering/Resolving]
  - Haemoglobin decreased [Recovering/Resolving]
  - Postictal state [Recovering/Resolving]
  - Anticoagulation drug level below therapeutic [Recovering/Resolving]
  - Hypotension [Recovering/Resolving]
